FAERS Safety Report 15305270 (Version 1)
Quarter: 2018Q3

REPORT INFORMATION
  Report Type: Spontaneous
  Country: GB (occurrence: GB)
  Receive Date: 20180822
  Receipt Date: 20180822
  Transmission Date: 20181010
  Serious: Yes (Other)
  Sender: FDA-Public Use
  Company Number: GB-TEVA-2018-GB-945802

PATIENT
  Age: 72 Year
  Sex: Female
  Weight: 126 kg

DRUGS (8)
  1. ATORVASTATIN [Concomitant]
     Active Substance: ATORVASTATIN
     Dosage: 20 MILLIGRAM DAILY;
     Dates: start: 20180713
  2. METOJECT [Concomitant]
     Active Substance: METHOTREXATE SODIUM
     Dates: start: 20180614, end: 20180725
  3. CAPTOPRIL. [Concomitant]
     Active Substance: CAPTOPRIL
     Dosage: 150 MILLIGRAM DAILY;
     Dates: start: 20180611
  4. OMEPRAZOLE. [Suspect]
     Active Substance: OMEPRAZOLE
     Dosage: 20 MG
     Route: 048
  5. CO?AMOXICLAV [Concomitant]
     Active Substance: AMOXICILLIN\CLAVULANATE POTASSIUM
     Dosage: 3 DOSAGE FORMS DAILY; 500MG/125MG
     Dates: start: 20180529
  6. XARELTO [Concomitant]
     Active Substance: RIVAROXABAN
     Dosage: 5 MILLIGRAM DAILY;
     Dates: start: 20180611
  7. TRIMETHOPRIM. [Concomitant]
     Active Substance: TRIMETHOPRIM
     Dosage: 400 MILLIGRAM DAILY;
     Dates: start: 20180521
  8. ISOSORBIDE MONONITRATE. [Concomitant]
     Active Substance: ISOSORBIDE MONONITRATE
     Dosage: 40 MILLIGRAM DAILY;
     Dates: start: 20180611

REACTIONS (4)
  - Irritable bowel syndrome [Recovered/Resolved]
  - Mucous stools [Unknown]
  - Enterocolitis [Recovered/Resolved]
  - Proctitis [Recovered/Resolved]

NARRATIVE: CASE EVENT DATE: 20180701
